FAERS Safety Report 8918237 (Version 1)
Quarter: 2012Q4

REPORT INFORMATION
  Report Type: 
  Country: CO (occurrence: CO)
  Receive Date: 20121120
  Receipt Date: 20121120
  Transmission Date: 20130627
  Serious: Yes (Other)
  Sender: FDA-Public Use
  Company Number: CO-PFIZER INC-2012286687

PATIENT
  Age: 60 Year
  Sex: Male

DRUGS (2)
  1. XALATAN [Suspect]
     Indication: GLAUCOMA
     Dosage: 1 drop in right eye, 1x/day
     Route: 047
     Dates: start: 2002
  2. TIMOLOL [Concomitant]
     Dosage: 2 drops in left eye
     Route: 047

REACTIONS (2)
  - Glaucoma [Unknown]
  - Cataract [Unknown]
